FAERS Safety Report 8188179-X (Version None)
Quarter: 2012Q1

REPORT INFORMATION
  Report Type: 
  Country: None (occurrence: None)
  Receive Date: 20120306
  Receipt Date: 20120229
  Transmission Date: 20120608
  Serious: Yes (Hospitalization, Other)
  Sender: FDA-Public Use
  Company Number: BR-PFIZER INC-2012018892

PATIENT
  Age: 67 Year
  Sex: Male
  Weight: 90 kg

DRUGS (5)
  1. SERTRALINE [Concomitant]
     Dosage: 25 MG, IN THE MORNING
  2. ATENOLOL [Concomitant]
     Dosage: 50 MG, IN THE MORNING
  3. OMEPRAZOLE [Concomitant]
     Dosage: 20 MG, IN THE MORNING
  4. SUTENT [Suspect]
     Indication: METASTATIC RENAL CELL CARCINOMA
     Dosage: 50 MG, 1X/DAY
     Route: 048
     Dates: start: 20111228, end: 20120101
  5. DEPAKOTE [Concomitant]
     Dosage: 500 MG, 2X/DAY

REACTIONS (4)
  - BLOOD CREATININE INCREASED [None]
  - URINARY TRACT INFECTION [None]
  - FATIGUE [None]
  - BLOOD UREA INCREASED [None]
